FAERS Safety Report 23315678 (Version 1)
Quarter: 2023Q4

REPORT INFORMATION
  Report Type: Report from Study
  Country: US (occurrence: US)
  Receive Date: 20231219
  Receipt Date: 20231219
  Transmission Date: 20240110
  Serious: No
  Sender: FDA-Public Use
  Company Number: US-HLS-202300451

PATIENT
  Sex: Female

DRUGS (3)
  1. CLOZAPINE [Suspect]
     Active Substance: CLOZAPINE
     Indication: Aggression
     Dosage: 25MG IN THE MORNING AND?62.5MG AT BEDTIME
     Route: 065
  2. CLOZAPINE [Suspect]
     Active Substance: CLOZAPINE
     Indication: Agitation
     Dosage: 25MG IN THE MORNING AND?62.5MG AT BEDTIME
     Route: 065
  3. CLOZAPINE [Suspect]
     Active Substance: CLOZAPINE
     Indication: Catatonia
     Dosage: 25MG IN THE MORNING AND?62.5MG AT BEDTIME
     Route: 065

REACTIONS (2)
  - Off label use [Unknown]
  - Off label use [Unknown]
